FAERS Safety Report 5692895-9 (Version None)
Quarter: 2008Q2

REPORT INFORMATION
  Report Type: 
  Country: None (occurrence: None)
  Receive Date: 20080326
  Receipt Date: 20071128
  Transmission Date: 20081010
  Serious: No
  Sender: FDA-Public Use
  Company Number: US-CVT-070185

PATIENT
  Age: 32 Year
  Sex: Male

DRUGS (6)
  1. RANEXA [Suspect]
     Indication: ANGINA PECTORIS
     Dosage: 1000 MG, BID, ORAL ; 500 MG, BID, ORAL ; 1000 MG, BID, ORAL ; 500 MG, BID, ORAL
     Route: 048
     Dates: start: 20060101, end: 20070501
  2. RANEXA [Suspect]
     Indication: ANGINA PECTORIS
     Dosage: 1000 MG, BID, ORAL ; 500 MG, BID, ORAL ; 1000 MG, BID, ORAL ; 500 MG, BID, ORAL
     Route: 048
     Dates: start: 20070101, end: 20071108
  3. RANEXA [Suspect]
     Indication: ANGINA PECTORIS
     Dosage: 1000 MG, BID, ORAL ; 500 MG, BID, ORAL ; 1000 MG, BID, ORAL ; 500 MG, BID, ORAL
     Route: 048
     Dates: start: 20071108, end: 20071115
  4. RANEXA [Suspect]
     Indication: ANGINA PECTORIS
     Dosage: 1000 MG, BID, ORAL ; 500 MG, BID, ORAL ; 1000 MG, BID, ORAL ; 500 MG, BID, ORAL
     Route: 048
     Dates: start: 20071115
  5. CRESTOR [Suspect]
     Dosage: 10 MG
  6. ZETIA [Concomitant]

REACTIONS (3)
  - ARTHRALGIA [None]
  - MUSCLE SPASMS [None]
  - MYALGIA [None]
